FAERS Safety Report 19052510 (Version 1)
Quarter: 2021Q1

REPORT INFORMATION
  Report Type: Report from Study
  Country: IT (occurrence: IT)
  Receive Date: 20210324
  Receipt Date: 20210324
  Transmission Date: 20210420
  Serious: Yes (Other)
  Sender: FDA-Public Use
  Company Number: IT-MYLANLABS-2021M1015826

PATIENT
  Age: 65 Year
  Sex: Female

DRUGS (4)
  1. TOTALIP [Concomitant]
     Active Substance: ATORVASTATIN
     Dosage: 20 MILLIGRAM
  2. CIPRALEX [Concomitant]
     Active Substance: ESCITALOPRAM OXALATE
     Dosage: UNK
  3. ZOPRAZIDE [Concomitant]
     Active Substance: HYDROCHLOROTHIAZIDE\ZOFENOPRIL CALCIUM
     Dosage: UNK
  4. TRIAZOLAM. [Suspect]
     Active Substance: TRIAZOLAM
     Indication: ANXIETY
     Dosage: 30 GTT DROPS, TOTAL
     Route: 048
     Dates: start: 20201223, end: 20201223

REACTIONS (3)
  - Sopor [Recovering/Resolving]
  - Intentional product misuse [Unknown]
  - Drug abuse [Unknown]

NARRATIVE: CASE EVENT DATE: 20201223
